FAERS Safety Report 7970332-9 (Version None)
Quarter: 2011Q4

REPORT INFORMATION
  Report Type: 
  Country: None (occurrence: None)
  Receive Date: 20111212
  Receipt Date: 20111206
  Transmission Date: 20120403
  Serious: Yes (Death, Other)
  Sender: FDA-Public Use
  Company Number: GB-JNJFOC-20111204061

PATIENT
  Age: 74 Year
  Sex: Male

DRUGS (1)
  1. DOXORUBICIN HCL [Suspect]
     Indication: HEPATIC NEOPLASM MALIGNANT
     Route: 013

REACTIONS (5)
  - SEPSIS [None]
  - GALLBLADDER PERFORATION [None]
  - OFF LABEL USE [None]
  - PANCREATITIS NECROTISING [None]
  - INCORRECT ROUTE OF DRUG ADMINISTRATION [None]
